FAERS Safety Report 8376280-7 (Version None)
Quarter: 2012Q1

REPORT INFORMATION
  Report Type: 
  Country: None (occurrence: None)
  Receive Date: 20120323
  Receipt Date: 20110720
  Transmission Date: 20120608
  Serious: Yes (Hospitalization)
  Sender: FDA-Public Use
  Company Number: 163-21880-11060093

PATIENT
  Age: 53 Year
  Sex: Male
  Weight: 123.832 kg

DRUGS (22)
  1. BETAMETHASONE [Concomitant]
  2. MULTIVITAMIN [Concomitant]
  3. DEXAMETHASONE [Concomitant]
  4. XANAX [Concomitant]
  5. MORPHINE [Concomitant]
  6. PERCOCET [Concomitant]
  7. ASPIRIN [Concomitant]
  8. FIORICET [Concomitant]
  9. MECLIZINE [Concomitant]
  10. QUNIAPRIL (QUINAPRIL) [Concomitant]
  11. DYAZIDE [Concomitant]
  12. LYRICA [Concomitant]
  13. DESONIDE [Concomitant]
  14. PRILOSEC [Concomitant]
  15. REVLIMID [Suspect]
     Indication: MULTIPLE MYELOMA
     Dosage: 25 MG, 1 IN 1 D, PO ; 5 MG, DAILY FOR 21 DAYS EVERY MONTH, PO ; DAY 1-21 EVERY 28 DAYS, PO
     Route: 048
     Dates: start: 20110421, end: 20110527
  16. REVLIMID [Suspect]
     Indication: MULTIPLE MYELOMA
     Dosage: 25 MG, 1 IN 1 D, PO ; 5 MG, DAILY FOR 21 DAYS EVERY MONTH, PO ; DAY 1-21 EVERY 28 DAYS, PO
     Route: 048
     Dates: start: 20070801, end: 20070101
  17. REVLIMID [Suspect]
     Indication: MULTIPLE MYELOMA
     Dosage: 25 MG, 1 IN 1 D, PO ; 5 MG, DAILY FOR 21 DAYS EVERY MONTH, PO ; DAY 1-21 EVERY 28 DAYS, PO
     Route: 048
     Dates: start: 20110724
  18. COMPAZINE [Concomitant]
  19. ZOMETA [Concomitant]
  20. DICLOFENAC SODIUM [Concomitant]
  21. ATIVAN [Concomitant]
  22. ULTRAM [Concomitant]

REACTIONS (2)
  - BALANCE DISORDER [None]
  - COLITIS [None]
